FAERS Safety Report 8728203 (Version 2)
Quarter: 2012Q4

REPORT INFORMATION
  Report Type: 
  Country: DE (occurrence: DE)
  Receive Date: 20120817
  Receipt Date: 20120920
  Transmission Date: 20130627
  Serious: Yes (Other)
  Sender: FDA-Public Use
  Company Number: DE-BRISTOL-MYERS SQUIBB COMPANY-16843385

PATIENT
  Age: 82 Year
  Sex: Male

DRUGS (3)
  1. ONGLYZA TABS 5 MG [Suspect]
     Dosage: taking 1 tablet Onglyza 5 mg in the morning for 3 months now.
     Dates: start: 2012
  2. COTAREG [Concomitant]
     Dosage: In the morning
  3. NIFEHEXAL [Concomitant]

REACTIONS (1)
  - Cataract [Unknown]
